FAERS Safety Report 21383899 (Version 1)
Quarter: 2022Q3

REPORT INFORMATION
  Report Type: Report from Study
  Country: US (occurrence: US)
  Receive Date: 20220928
  Receipt Date: 20220928
  Transmission Date: 20221027
  Serious: Yes (Hospitalization)
  Sender: FDA-Public Use
  Company Number: US-ABBVIE-4131345

PATIENT
  Sex: Female

DRUGS (1)
  1. VENCLEXTA [Suspect]
     Active Substance: VENETOCLAX
     Indication: Immunodeficiency common variable
     Dosage: FOUR TABLETS WITH FOOD AND WATER AT THE SAME TIME EACH DAY
     Route: 048

REACTIONS (2)
  - Haemoglobin decreased [Unknown]
  - Off label use [Unknown]
